FAERS Safety Report 10128445 (Version 2)
Quarter: 2019Q3

REPORT INFORMATION
  Report Type: Report from Study
  Country: SE (occurrence: SE)
  Receive Date: 20140428
  Receipt Date: 20190722
  Transmission Date: 20191004
  Serious: Yes (Death, Other)
  Sender: FDA-Public Use
  Company Number: SE-UCBSA-118640

PATIENT
  Age: 71 Year
  Sex: Male

DRUGS (6)
  1. FOLIC ACID. [Concomitant]
     Active Substance: FOLIC ACID
     Dosage: 5 MG, 2X/WEEK
     Dates: start: 20131010
  2. ENALAPRIL [Concomitant]
     Active Substance: ENALAPRIL
     Indication: HYPERTENSION
     Dosage: 20 MG, ONCE DAILY (QD)
  3. MTX [METHOTREXATE] [Suspect]
     Active Substance: METHOTREXATE SODIUM
     Indication: PRODUCT USED FOR UNKNOWN INDICATION
     Dosage: UNK
     Dates: start: 20131014, end: 20140526
  4. CERTOLIZUMAB PEGOL [Suspect]
     Active Substance: CERTOLIZUMAB PEGOL
     Indication: RHEUMATOID ARTHRITIS
     Dosage: 200 MG, EV 2 WEEKS(QOW)
     Route: 058
     Dates: start: 20131014, end: 20140526
  5. AMLODIPIN [Concomitant]
     Active Substance: AMLODIPINE BESYLATE
     Indication: HYPERTENSION
     Dosage: 10 MG, ONCE DAILY (QD)
  6. KETOPROFEN. [Concomitant]
     Active Substance: KETOPROFEN
     Indication: ARTHRITIS
     Dosage: 200 MG, AS NEEDED (PRN)
     Dates: start: 20131010

REACTIONS (2)
  - Death [Fatal]
  - Prostate cancer [Recovered/Resolved with Sequelae]

NARRATIVE: CASE EVENT DATE: 201602
